FAERS Safety Report 6716232-3 (Version None)
Quarter: 2010Q2

REPORT INFORMATION
  Report Type: 
  Country: None (occurrence: None)
  Receive Date: 20100507
  Receipt Date: 20100428
  Transmission Date: 20101027
  Serious: Yes (Hospitalization)
  Sender: FDA-Public Use
  Company Number: JP-ABBOTT-10P-087-0637636-00

PATIENT
  Sex: Female
  Weight: 37 kg

DRUGS (10)
  1. HUMIRA [Suspect]
     Indication: RHEUMATOID ARTHRITIS
     Route: 058
     Dates: start: 20100212, end: 20100330
  2. HUMIRA [Suspect]
     Dates: start: 20100427
  3. TACROLIMUS HYDRATE [Suspect]
     Indication: RHEUMATOID ARTHRITIS
     Dates: end: 20100402
  4. CELECOXIB [Suspect]
     Indication: GASTRITIS
     Dates: end: 20100409
  5. SALAZOSULFAPYRIDINE [Concomitant]
     Indication: RHEUMATOID ARTHRITIS
     Dosage: 4- 250 MG TABLETS DAILY
     Route: 048
  6. LANSOPRAZOLE [Concomitant]
     Indication: GASTRIC ULCER
     Dosage: 15 MG DAILY
     Route: 048
  7. BIFIDOBACTERIUM [Concomitant]
     Indication: ENTEROCOLITIS
     Dosage: 3 GM DAILY
     Route: 048
  8. ATORVASTATIN CALCIUM [Concomitant]
     Indication: BLOOD CHOLESTEROL ABNORMAL
     Dosage: 10 MG DAILY
     Route: 048
  9. MAGNESIUM OXIDE [Concomitant]
     Indication: CONSTIPATION
     Dosage: 2 GM DAILY
     Route: 048
  10. KETOPROFEN [Concomitant]
     Indication: RHEUMATOID ARTHRITIS

REACTIONS (7)
  - ECZEMA [None]
  - FACE OEDEMA [None]
  - FLUSHING [None]
  - PRURITUS [None]
  - RASH [None]
  - STEVENS-JOHNSON SYNDROME [None]
  - STOMATITIS [None]
